FAERS Safety Report 23591947 (Version 5)
Quarter: 2024Q2

REPORT INFORMATION
  Report Type: Spontaneous
  Country: US (occurrence: US)
  Receive Date: 20240304
  Receipt Date: 20240425
  Transmission Date: 20240716
  Serious: Yes (Other)
  Sender: FDA-Public Use
  Company Number: US-PFIZER INC-202400048747

PATIENT
  Sex: Female

DRUGS (1)
  1. PREMARIN [Suspect]
     Active Substance: ESTROGENS, CONJUGATED
     Dosage: TWICE A WEEK

REACTIONS (4)
  - Neoplasm malignant [Unknown]
  - Urinary tract infection [Unknown]
  - Product prescribing error [Unknown]
  - Therapeutic response unexpected [Unknown]
